FAERS Safety Report 9877827 (Version 1)
Quarter: 2014Q1

REPORT INFORMATION
  Report Type: Spontaneous
  Country: FR (occurrence: FR)
  Receive Date: 20140206
  Receipt Date: 20140206
  Transmission Date: 20141002
  Serious: Yes (Disabling)
  Sender: FDA-Public Use
  Company Number: FR-ASTRAZENECA-2014SE07147

PATIENT
  Age: 49 Year
  Sex: Female

DRUGS (5)
  1. INEXIUM [Suspect]
     Route: 042
     Dates: start: 20130410, end: 20130421
  2. PERFALGAN [Suspect]
     Route: 042
     Dates: start: 20130410, end: 20130411
  3. CIPROFLOXACINE KABI [Suspect]
     Route: 042
     Dates: start: 20130410, end: 20130419
  4. ORBENINE [Suspect]
     Route: 042
     Dates: start: 20130410, end: 20130419
  5. CONTRAMAL [Concomitant]

REACTIONS (1)
  - Tendon rupture [Not Recovered/Not Resolved]
